FAERS Safety Report 10598581 (Version 1)
Quarter: 2014Q4

REPORT INFORMATION
  Report Type: Spontaneous
  Country: US (occurrence: US)
  Receive Date: 20141121
  Receipt Date: 20141121
  Transmission Date: 20150529
  Serious: Yes (Hospitalization)
  Sender: FDA-Public Use
  Company Number: US-BIOMARINAP-US-2014-104675

PATIENT
  Sex: Female
  Weight: 75 kg

DRUGS (1)
  1. NAGLAZYME [Suspect]
     Active Substance: GALSULFASE
     Indication: MUCOPOLYSACCHARIDOSIS VI
     Dosage: 75 MG, QW
     Route: 042
     Dates: start: 20050713

REACTIONS (1)
  - Diarrhoea [Not Recovered/Not Resolved]
